FAERS Safety Report 18647639 (Version 1)
Quarter: 2020Q4

REPORT INFORMATION
  Report Type: Spontaneous
  Country: US (occurrence: US)
  Receive Date: 20201222
  Receipt Date: 20201222
  Transmission Date: 20210114
  Serious: No
  Sender: FDA-Public Use
  Company Number: US-RECKITT BENCKISER HEALTHCARE INT LIMITED-RB-85629-2020

PATIENT
  Sex: Female
  Weight: 48.1 kg

DRUGS (3)
  1. DELSYM [Suspect]
     Active Substance: DEXTROMETHORPHAN
     Indication: COUGH
     Dosage: UNK
     Route: 065
  2. IBRANCE [Suspect]
     Active Substance: PALBOCICLIB
     Indication: PELVIC NEOPLASM
     Dosage: TOOK 125 MILLIGRAM AT A CYCLIC FREQUENCY
     Route: 048
     Dates: start: 201812
  3. SYNTHROID [Concomitant]
     Active Substance: LEVOTHYROXINE SODIUM
     Indication: PRODUCT USED FOR UNKNOWN INDICATION
     Dosage: UNK
     Route: 065

REACTIONS (5)
  - Confusional state [Unknown]
  - Drug ineffective [Not Recovered/Not Resolved]
  - Vertigo [Unknown]
  - Nasopharyngitis [Unknown]
  - Expired product administered [Unknown]
